APPROVED DRUG PRODUCT: OSMITROL 15% IN WATER
Active Ingredient: MANNITOL
Strength: 15GM/100ML
Dosage Form/Route: INJECTABLE;INJECTION
Application: N013684 | Product #004 | TE Code: AP
Applicant: BAXTER HEALTHCARE CORP
Approved: Approved Prior to Jan 1, 1982 | RLD: No | RS: No | Type: RX